APPROVED DRUG PRODUCT: NEUPRO
Active Ingredient: ROTIGOTINE
Strength: 8MG/24HR
Dosage Form/Route: FILM, EXTENDED RELEASE;TRANSDERMAL
Application: N021829 | Product #006
Applicant: UCB INC
Approved: Apr 2, 2012 | RLD: Yes | RS: No | Type: RX

PATENTS:
Patent 8246979 | Expires: Sep 1, 2027
Patent 9925150 | Expires: Mar 1, 2032
Patent 10130589 | Expires: Dec 22, 2030
Patent 10350174 | Expires: Dec 22, 2030
Patent 8246979 | Expires: Sep 1, 2027